FAERS Safety Report 18525899 (Version 2)
Quarter: 2021Q1

REPORT INFORMATION
  Report Type: Report from Study
  Country: JP (occurrence: JP)
  Receive Date: 20201120
  Receipt Date: 20210222
  Transmission Date: 20210419
  Serious: Yes (Hospitalization)
  Sender: FDA-Public Use
  Company Number: JP-GLAXOSMITHKLINE-JP2020227550

PATIENT
  Age: 8 Decade
  Sex: Female

DRUGS (33)
  1. MEPOLIZUMAB [Suspect]
     Active Substance: MEPOLIZUMAB
     Dosage: 100 MG
     Route: 058
     Dates: start: 20190614, end: 20190614
  2. PREDONINE [Concomitant]
     Active Substance: PREDNISOLONE
     Indication: ASTHMA
     Dosage: 10 MG, 1D
     Route: 048
  3. PREDONINE [Concomitant]
     Active Substance: PREDNISOLONE
     Dosage: 30 MG, 1D
     Route: 048
     Dates: start: 20190603
  4. RELVAR ELLIPTA [Concomitant]
     Active Substance: FLUTICASONE FUROATE\VILANTEROL TRIFENATATE
     Indication: ASTHMA
     Dosage: 100 ?G, 1D
     Route: 055
  5. RHYTHMY [Concomitant]
     Active Substance: RILMAZAFONE HYDROCHLORIDE
     Route: 048
  6. EDIROL CAPSULE [Concomitant]
     Route: 048
  7. MEPOLIZUMAB [Suspect]
     Active Substance: MEPOLIZUMAB
     Dosage: 100 MG
     Route: 058
     Dates: start: 20180706, end: 20180706
  8. MEPOLIZUMAB [Suspect]
     Active Substance: MEPOLIZUMAB
     Dosage: 100 MG
     Route: 058
     Dates: start: 20181130, end: 20181130
  9. MEPOLIZUMAB [Suspect]
     Active Substance: MEPOLIZUMAB
     Dosage: 100 MG
     Route: 058
     Dates: start: 20190419, end: 20190419
  10. MEPOLIZUMAB [Suspect]
     Active Substance: MEPOLIZUMAB
     Dosage: 100 MG
     Route: 058
     Dates: start: 20190515, end: 20190515
  11. PREDONINE [Concomitant]
     Active Substance: PREDNISOLONE
     Dosage: 30 MG, 1D
     Route: 048
     Dates: start: 20190325, end: 20190401
  12. NEXIUM [Concomitant]
     Active Substance: ESOMEPRAZOLE MAGNESIUM
     Route: 048
  13. RILMAZAFONE HYDROCHLORIDE TABLETS [Concomitant]
     Route: 048
  14. SULPIRIDE TABLETS [Concomitant]
     Active Substance: SULPIRIDE
     Route: 048
  15. MEPOLIZUMAB [Suspect]
     Active Substance: MEPOLIZUMAB
     Dosage: 100 MG
     Route: 058
     Dates: start: 20180803, end: 20180803
  16. MEPOLIZUMAB [Suspect]
     Active Substance: MEPOLIZUMAB
     Dosage: 100 MG
     Route: 058
     Dates: start: 20181228, end: 20181228
  17. TAKECAB [Concomitant]
     Active Substance: VONOPRAZAN FUMARATE
     Route: 048
  18. LEXAPRO [Concomitant]
     Active Substance: ESCITALOPRAM OXALATE
     Route: 048
  19. NEOSTELIN GREEN MOUTHWASH SOLUTION [Concomitant]
  20. CALONAL [Concomitant]
     Active Substance: ACETAMINOPHEN
     Route: 048
  21. MEPOLIZUMAB [Suspect]
     Active Substance: MEPOLIZUMAB
     Dosage: 100 MG
     Route: 058
     Dates: start: 20190322, end: 20190322
  22. SPIRIVA RESPIMAT [Concomitant]
     Active Substance: TIOTROPIUM BROMIDE
     Indication: ASTHMA
  23. MEPOLIZUMAB [Suspect]
     Active Substance: MEPOLIZUMAB
     Dosage: 100 MG
     Route: 058
     Dates: start: 20180928, end: 20180928
  24. MEPOLIZUMAB [Suspect]
     Active Substance: MEPOLIZUMAB
     Dosage: 100 MG
     Route: 058
     Dates: start: 20190222, end: 20190222
  25. SULTANOL [Concomitant]
     Active Substance: ALBUTEROL SULFATE
     Indication: ASTHMA
     Route: 055
  26. VESICARE [Concomitant]
     Active Substance: SOLIFENACIN SUCCINATE
     Route: 048
  27. MEPOLIZUMAB [Suspect]
     Active Substance: MEPOLIZUMAB
     Dosage: 100 MG
     Route: 058
     Dates: start: 20180831, end: 20180831
  28. MEPOLIZUMAB [Suspect]
     Active Substance: MEPOLIZUMAB
     Dosage: 100 MG
     Route: 058
     Dates: start: 20181102, end: 20181102
  29. ABILIT [Concomitant]
     Active Substance: SULPIRIDE
     Route: 048
  30. MEPOLIZUMAB [Suspect]
     Active Substance: MEPOLIZUMAB
     Indication: ASTHMA
     Dosage: 100 MG
     Route: 058
     Dates: start: 20180608, end: 20180608
  31. MEPOLIZUMAB [Suspect]
     Active Substance: MEPOLIZUMAB
     Dosage: 100 MG
     Route: 058
     Dates: start: 20190125, end: 20190125
  32. BETANIS [Concomitant]
     Active Substance: MIRABEGRON
     Route: 048
  33. LOXONIN TAPE [Concomitant]
     Active Substance: LOXOPROFEN SODIUM DIHYDRATE

REACTIONS (3)
  - Bronchitis [Recovered/Resolved]
  - Asthma [Recovered/Resolved]
  - Asthma [Recovered/Resolved]

NARRATIVE: CASE EVENT DATE: 20190304
